FAERS Safety Report 16440911 (Version 1)
Quarter: 2019Q2

REPORT INFORMATION
  Report Type: Spontaneous
  Country: DE (occurrence: DE)
  Receive Date: 20190617
  Receipt Date: 20190617
  Transmission Date: 20190711
  Serious: Yes (Other)
  Sender: FDA-Public Use
  Company Number: DE-FRESENIUS KABI-FK201906645

PATIENT
  Age: 28 Year
  Sex: Female

DRUGS (6)
  1. SULPROSTONE [Concomitant]
     Active Substance: SULPROSTONE
     Indication: UTERINE HAEMORRHAGE
     Route: 065
  2. PLASMA [Concomitant]
     Active Substance: HUMAN PLASMA
     Indication: UTERINE HAEMORRHAGE
     Route: 065
  3. FACTOR I (FIBRINOGEN) [Concomitant]
     Active Substance: FIBRINOGEN HUMAN
     Indication: UTERINE HAEMORRHAGE
     Route: 065
  4. OXYTOCIN. [Concomitant]
     Active Substance: OXYTOCIN
     Indication: UTERINE HAEMORRHAGE
     Route: 065
  5. FACTOR VII (PROCONVERTIN)/FACTOR II (PROTHROMBIN)/FACTOR X (STUART PROWER FACTOR)/FACTOR IX [Concomitant]
     Indication: UTERINE HAEMORRHAGE
     Route: 065
  6. TRANEXAMIC ACID (MANUFACTURER UNKNOWN) [Suspect]
     Active Substance: TRANEXAMIC ACID
     Indication: UTERINE HAEMORRHAGE
     Route: 065

REACTIONS (5)
  - Product use in unapproved indication [Unknown]
  - Pleural effusion [Unknown]
  - Epilepsy [Recovered/Resolved]
  - Renal cortical necrosis [Unknown]
  - Renal failure [Unknown]
